FAERS Safety Report 15548091 (Version 7)
Quarter: 2022Q2

REPORT INFORMATION
  Report Type: Report from Study
  Country: US (occurrence: US)
  Receive Date: 20181024
  Receipt Date: 20220404
  Transmission Date: 20220721
  Serious: Yes (Other)
  Sender: FDA-Public Use
  Company Number: PHEH2018US044628

PATIENT
  Sex: Female

DRUGS (10)
  1. AFINITOR DISPERZ [Suspect]
     Active Substance: EVEROLIMUS
     Indication: Astrocytoma, low grade
     Dosage: 10 MG, QD
     Route: 048
     Dates: start: 20130430
  2. AFINITOR DISPERZ [Suspect]
     Active Substance: EVEROLIMUS
     Dosage: 6 MG, QD
     Route: 048
     Dates: start: 20140430
  3. AFINITOR DISPERZ [Suspect]
     Active Substance: EVEROLIMUS
     Dosage: 9 MG, QD
     Route: 048
  4. AFINITOR DISPERZ [Suspect]
     Active Substance: EVEROLIMUS
     Dosage: 10 MG, QD
     Route: 048
     Dates: start: 20140430
  5. ONFI [Concomitant]
     Active Substance: CLOBAZAM
     Indication: Product used for unknown indication
     Dosage: UNK
     Route: 065
  6. ZONEGRAN [Concomitant]
     Active Substance: ZONISAMIDE
     Indication: Epilepsy
     Dosage: 75 MG, BID
     Route: 065
  7. TYLENOL [Concomitant]
     Active Substance: ACETAMINOPHEN
     Indication: Product used for unknown indication
     Dosage: UNK, PRN
     Route: 065
  8. SABRIL [Concomitant]
     Active Substance: VIGABATRIN
     Indication: Epilepsy
     Dosage: 500 MG, BID
     Route: 048
     Dates: start: 20151123
  9. EVEROLIMUS [Concomitant]
     Active Substance: EVEROLIMUS
     Indication: Product used for unknown indication
     Dosage: 4 MG, BID
     Route: 048
  10. VIGABATRIN [Concomitant]
     Active Substance: VIGABATRIN
     Indication: Product used for unknown indication
     Dosage: 250 MG, BID
     Route: 048

REACTIONS (5)
  - Seizure [Unknown]
  - Therapeutic response decreased [Not Recovered/Not Resolved]
  - Aphthous ulcer [Not Recovered/Not Resolved]
  - Stomatitis [Not Recovered/Not Resolved]
  - Rash [Unknown]
